FAERS Safety Report 6969471-0 (Version None)
Quarter: 2010Q3

REPORT INFORMATION
  Report Type: 
  Country: None (occurrence: None)
  Receive Date: 20100902
  Receipt Date: 20100830
  Transmission Date: 20110219
  Serious: Yes (Other)
  Sender: FDA-Public Use
  Company Number: TRP_07220_2010

PATIENT
  Sex: Male

DRUGS (7)
  1. INFERGEN [Suspect]
     Indication: HEPATITIS C
     Dosage: 15 UG, QD SUBCUTANEOUS
     Route: 058
     Dates: start: 20100816
  2. RIBAVIRIN [Suspect]
     Indication: HEPATITIS C
     Dosage: 600 MG BID ORAL
     Route: 048
     Dates: start: 20100816
  3. XANAX [Concomitant]
  4. CELEXA [Concomitant]
  5. AMBIEN [Concomitant]
  6. ADVAIR DISKUS 100/50 [Concomitant]
  7. ALBUTEROL [Concomitant]

REACTIONS (2)
  - DIPLOPIA [None]
  - FATIGUE [None]
